FAERS Safety Report 10354947 (Version 2)
Quarter: 2014Q3

REPORT INFORMATION
  Report Type: Spontaneous
  Country: FR (occurrence: FR)
  Receive Date: 20140731
  Receipt Date: 20140731
  Transmission Date: 20150326
  Serious: Yes (Death, Hospitalization)
  Sender: FDA-Public Use
  Company Number: FR-TEVA-222828ISR

PATIENT
  Age: 58 Year
  Sex: Male

DRUGS (6)
  1. ETOPOSIDE TEVA [Suspect]
     Active Substance: ETOPOSIDE
     Indication: NON-HODGKIN^S LYMPHOMA
     Dosage: 200 MILLIGRAM DAILY;
     Route: 042
     Dates: start: 20091123, end: 20091123
  2. EPREX [Concomitant]
     Active Substance: ERYTHROPOIETIN
  3. CARBOPLATIN TEVA [Suspect]
     Active Substance: CARBOPLATIN
     Indication: NON-HODGKIN^S LYMPHOMA
     Dosage: 550 MILLIGRAM DAILY;
     Route: 042
     Dates: start: 20091124, end: 20091124
  4. PREVISCAN [Concomitant]
     Active Substance: FLUINDIONE
  5. HALOXAN [Suspect]
     Active Substance: IFOSFAMIDE
     Indication: NON-HODGKIN^S LYMPHOMA
     Dosage: 10 GRAM DAILY;
     Route: 042
     Dates: start: 20091124, end: 20091124
  6. NEULASTA [Concomitant]
     Active Substance: PEGFILGRASTIM

REACTIONS (4)
  - Febrile bone marrow aplasia [Unknown]
  - Renal failure acute [Unknown]
  - Oliguria [Unknown]
  - Death [Fatal]

NARRATIVE: CASE EVENT DATE: 20091203
